FAERS Safety Report 11499748 (Version 6)
Quarter: 2015Q4

REPORT INFORMATION
  Report Type: Report from Study
  Country: CA (occurrence: CA)
  Receive Date: 20150914
  Receipt Date: 20151012
  Transmission Date: 20160304
  Serious: Yes (Other)
  Sender: FDA-Public Use
  Company Number: CA-ROCHE-1598821

PATIENT
  Age: 30 Year
  Sex: Female

DRUGS (10)
  1. SEPTRA [Concomitant]
     Active Substance: SULFAMETHOXAZOLE\TRIMETHOPRIM
  2. PANTOPRAZOLE [Concomitant]
     Active Substance: PANTOPRAZOLE SODIUM
  3. KEPPRA [Concomitant]
     Active Substance: LEVETIRACETAM
  4. ACETAMINOPHEN. [Concomitant]
     Active Substance: ACETAMINOPHEN
  5. AVASTIN [Suspect]
     Active Substance: BEVACIZUMAB
     Route: 042
     Dates: start: 20150911, end: 20150911
  6. DECADRON [Suspect]
     Active Substance: DEXAMETHASONE
     Indication: PRODUCT USED FOR UNKNOWN INDICATION
     Route: 065
  7. LOMUSTINE. [Suspect]
     Active Substance: LOMUSTINE
     Indication: BRAIN NEOPLASM MALIGNANT
     Route: 065
     Dates: end: 2015
  8. ATIVAN [Concomitant]
     Active Substance: LORAZEPAM
  9. AVASTIN [Suspect]
     Active Substance: BEVACIZUMAB
     Indication: GLIOBLASTOMA
     Dosage: 10MG/KG
     Route: 042
     Dates: start: 20150609
  10. DOCUSATE DE SODIUM [Concomitant]

REACTIONS (35)
  - Lymphocyte count decreased [Not Recovered/Not Resolved]
  - White blood cells urine [Unknown]
  - Bacterial test positive [Unknown]
  - Band neutrophil count increased [Not Recovered/Not Resolved]
  - Blood alkaline phosphatase increased [Unknown]
  - Pyuria [Unknown]
  - Haematocrit decreased [Unknown]
  - Eosinophil count decreased [Unknown]
  - No therapeutic response [Unknown]
  - Headache [Not Recovered/Not Resolved]
  - Hypotension [Unknown]
  - Red blood cell count decreased [Unknown]
  - Liver disorder [Unknown]
  - Oxygen saturation decreased [Unknown]
  - Mean cell volume increased [Unknown]
  - Alanine aminotransferase increased [Unknown]
  - Platelet count decreased [Unknown]
  - White blood cell count decreased [Unknown]
  - Blood sodium increased [Unknown]
  - Blood chloride increased [Unknown]
  - Urinary sediment present [Unknown]
  - Neutrophil count increased [Not Recovered/Not Resolved]
  - Blood sodium increased [Unknown]
  - Body temperature decreased [Unknown]
  - Red cell distribution width increased [Unknown]
  - Blood urea increased [Unknown]
  - Red blood cells urine positive [Unknown]
  - Mean cell haemoglobin increased [Unknown]
  - Urine abnormality [Unknown]
  - Blood bicarbonate decreased [Unknown]
  - Platelet count decreased [Not Recovered/Not Resolved]
  - Contusion [Unknown]
  - Heart rate decreased [Unknown]
  - Liver function test abnormal [Unknown]
  - Blood test abnormal [Not Recovered/Not Resolved]

NARRATIVE: CASE EVENT DATE: 20150616
